FAERS Safety Report 12648264 (Version 1)
Quarter: 2016Q3

REPORT INFORMATION
  Report Type: Report from Study
  Country: US (occurrence: US)
  Receive Date: 20160812
  Receipt Date: 20160812
  Transmission Date: 20161109
  Serious: Yes (Hospitalization, Other)
  Sender: FDA-Public Use
  Company Number: US-ABBVIE-16K-163-1695774-00

PATIENT
  Sex: Female

DRUGS (3)
  1. HYDROCHLOROTHIAZIDE. [Interacting]
     Active Substance: HYDROCHLOROTHIAZIDE
     Indication: PRODUCT USED FOR UNKNOWN INDICATION
     Route: 065
  2. HUMIRA [Suspect]
     Active Substance: ADALIMUMAB
     Indication: RHEUMATOID ARTHRITIS
     Route: 058
     Dates: end: 20150702
  3. HUMIRA [Interacting]
     Active Substance: ADALIMUMAB
     Route: 058

REACTIONS (7)
  - Hypokalaemia [Unknown]
  - Pneumonia [Unknown]
  - Drug interaction [Unknown]
  - Communication disorder [Recovering/Resolving]
  - Disorientation [Recovering/Resolving]
  - Amnesia [Recovering/Resolving]
  - Aphasia [Recovering/Resolving]

NARRATIVE: CASE EVENT DATE: 2016
